FAERS Safety Report 18722244 (Version 2)
Quarter: 2025Q4

REPORT INFORMATION
  Report Type: Spontaneous
  Country: EU (occurrence: None)
  Receive Date: 20210111
  Receipt Date: 20251120
  Transmission Date: 20260118
  Serious: Yes (Hospitalization, Other)
  Sender: AUROBINDO
  Company Number: EU-ACTAVIS-2011B-04449

PATIENT
  Age: 17 Year
  Sex: Female

DRUGS (2)
  1. LOPERAMIDE [Suspect]
     Active Substance: LOPERAMIDE
     Indication: Product used for unknown indication
     Dosage: 18 MILLIGRAM
     Route: 065
  2. TRIMEBUTINE [Suspect]
     Active Substance: TRIMEBUTINE
     Indication: Product used for unknown indication
     Dosage: 600 MILLIGRAM
     Route: 065

REACTIONS (5)
  - Lipase increased [Recovered/Resolved]
  - Amylase increased [Recovered/Resolved]
  - Abdominal pain upper [Recovered/Resolved]
  - Intentional overdose [Recovered/Resolved]
  - Overdose [Recovered/Resolved]
